FAERS Safety Report 9361480 (Version 4)
Quarter: 2014Q1

REPORT INFORMATION
  Report Type: Spontaneous
  Country: TR (occurrence: TR)
  Receive Date: 20130621
  Receipt Date: 20140109
  Transmission Date: 20141002
  Serious: Yes (Other)
  Sender: FDA-Public Use
  Company Number: TR-009507513-1306TUR007971

PATIENT
  Age: 35 Year
  Sex: Male

DRUGS (3)
  1. TEMOZOLOMIDE [Suspect]
     Indication: GLIOBLASTOMA MULTIFORME
     Dosage: UNK
  2. THERAPEUTIC RADIOPHARMACEUTICAL (UNSPECIFIED) [Suspect]
     Indication: GLIOBLASTOMA MULTIFORME
  3. DEXAMETHASONE [Concomitant]

REACTIONS (2)
  - Metastasis [Unknown]
  - Neoplasm progression [Unknown]
